FAERS Safety Report 22066932 (Version 1)
Quarter: 2023Q1

REPORT INFORMATION
  Report Type: Spontaneous
  Country: BR (occurrence: BR)
  Receive Date: 20230306
  Receipt Date: 20230306
  Transmission Date: 20230418
  Serious: Yes (Other)
  Sender: FDA-Public Use
  Company Number: BR-BAXTER-2023BAX012498

PATIENT
  Age: 21 Year
  Sex: Female

DRUGS (2)
  1. IRON [Suspect]
     Active Substance: IRON
     Indication: Anaemia
     Dosage: 2 AMPOULES DILUTED IN 250 ML OF SALINE SOLUTION IN 30 MINUTES, 2 TIMES A WEEK
     Route: 042
     Dates: start: 20230116, end: 20230116
  2. SODIUM CHLORIDE [Suspect]
     Active Substance: SODIUM CHLORIDE
     Indication: Medication dilution
     Dosage: 250 ML OF SALINE SOLUTION IN 30 MINUTES, 2 TIMES A WEEK
     Route: 042
     Dates: start: 20230116, end: 20230116

REACTIONS (3)
  - Vomiting [Recovered/Resolved]
  - Erythema [Recovered/Resolved]
  - Off label use [Recovered/Resolved]

NARRATIVE: CASE EVENT DATE: 20230116
